FAERS Safety Report 25909944 (Version 1)
Quarter: 2025Q4

REPORT INFORMATION
  Report Type: Spontaneous
  Country: US (occurrence: US)
  Receive Date: 20251012
  Receipt Date: 20251012
  Transmission Date: 20260118
  Serious: No
  Sender: SANOFI AVENTIS
  Company Number: US-SA-2025SA302696

PATIENT
  Age: 55 Year
  Sex: Female

DRUGS (13)
  1. DUPIXENT [Suspect]
     Active Substance: DUPILUMAB
     Indication: Eosinophilia
     Dosage: 300 MG, QOW
     Route: 058
     Dates: start: 20250910
  2. VITAMIN D [Concomitant]
     Active Substance: VITAMIN D NOS
  3. SINGULAIR [Concomitant]
     Active Substance: MONTELUKAST SODIUM
  4. NAPROXEN [Concomitant]
     Active Substance: NAPROXEN
  5. LIDOCAINE [Concomitant]
     Active Substance: LIDOCAINE
  6. ESTRADIOL [Concomitant]
     Active Substance: ESTRADIOL
  7. DICYCLOMINE [Concomitant]
     Active Substance: DICYCLOMINE HYDROCHLORIDE
  8. CLOBETASOL [Concomitant]
     Active Substance: CLOBETASOL
  9. BREO ELLIPTA [Concomitant]
     Active Substance: FLUTICASONE FUROATE\VILANTEROL TRIFENATATE
  10. BENADRYL [Concomitant]
     Active Substance: DIPHENHYDRAMINE HYDROCHLORIDE
  11. AMITRIPTYLINE [Concomitant]
     Active Substance: AMITRIPTYLINE
  12. ALBUTEROL [Concomitant]
     Active Substance: ALBUTEROL
  13. AIRSUPRA [Concomitant]
     Active Substance: ALBUTEROL SULFATE\BUDESONIDE

REACTIONS (2)
  - Toothache [Unknown]
  - Product use in unapproved indication [Unknown]

NARRATIVE: CASE EVENT DATE: 20250101
